FAERS Safety Report 10564589 (Version 1)
Quarter: 2014Q4

REPORT INFORMATION
  Report Type: Spontaneous
  Country: US (occurrence: US)
  Receive Date: 20141104
  Receipt Date: 20141104
  Transmission Date: 20150529
  Serious: No
  Sender: FDA-Public Use
  Company Number: US-MALLINCKRODT-T201403792

PATIENT
  Age: 57 Year
  Sex: Female
  Weight: 33.11 kg

DRUGS (4)
  1. FIORICET [Concomitant]
     Active Substance: ACETAMINOPHEN\BUTALBITAL\CAFFEINE
     Indication: HEADACHE
  2. FENTANYL TRANSDERMAL SYSTEM [Suspect]
     Active Substance: FENTANYL
     Indication: PAIN
     Dosage: 75 UG/HR, Q 72 HRS
     Route: 062
     Dates: start: 20141017, end: 20141017
  3. FENTANYL TRANSDERMAL SYSTEM [Suspect]
     Active Substance: FENTANYL
     Dosage: 50 UG/HR, Q 72 HRS
     Route: 062
     Dates: start: 201405
  4. OXYCODONE [Concomitant]
     Active Substance: OXYCODONE
     Indication: PAIN
     Dosage: 30 MG, UNK
     Route: 048

REACTIONS (7)
  - Incorrect drug administration duration [Unknown]
  - Dyspnoea [Recovered/Resolved]
  - Gait disturbance [Recovered/Resolved]
  - Drug effect decreased [Unknown]
  - Pain [Recovered/Resolved]
  - Expired product administered [Unknown]
  - Muscular weakness [Recovered/Resolved]

NARRATIVE: CASE EVENT DATE: 20141017
